FAERS Safety Report 21260442 (Version 1)
Quarter: 2022Q3

REPORT INFORMATION
  Report Type: Spontaneous
  Country: AU (occurrence: AU)
  Receive Date: 20220826
  Receipt Date: 20220826
  Transmission Date: 20221026
  Serious: Yes (Other)
  Sender: FDA-Public Use
  Company Number: AU-AMERICAN REGENT INC-2022002445

PATIENT
  Age: 77 Year
  Sex: Female

DRUGS (1)
  1. FERINJECT [Suspect]
     Active Substance: FERRIC CARBOXYMALTOSE
     Indication: Blood iron decreased
     Dosage: 1000 MILLIGRAM
     Dates: start: 20211125, end: 20211125

REACTIONS (7)
  - Cough [Recovered/Resolved]
  - Wheezing [Recovered/Resolved]
  - Bronchospasm [Recovered/Resolved]
  - Rash [Recovered/Resolved]
  - Urticaria [Recovered/Resolved]
  - Pruritus [Recovered/Resolved]
  - Flushing [Recovered/Resolved]

NARRATIVE: CASE EVENT DATE: 20211125
